FAERS Safety Report 7506132-3 (Version None)
Quarter: 2011Q2

REPORT INFORMATION
  Report Type: 
  Country: None (occurrence: None)
  Receive Date: 20110526
  Receipt Date: 20110517
  Transmission Date: 20111010
  Serious: Yes (Other)
  Sender: FDA-Public Use
  Company Number: US-ASTRAZENECA-2011SE20390

PATIENT
  Age: 75 Year
  Sex: Female

DRUGS (2)
  1. ARIMIDEX [Suspect]
     Route: 048
  2. NEXIUM [Suspect]
     Route: 048

REACTIONS (6)
  - BREAST CANCER [None]
  - FIBROMYALGIA [None]
  - TOOTH EXTRACTION [None]
  - OSTEOARTHRITIS [None]
  - MOBILITY DECREASED [None]
  - RHEUMATOID ARTHRITIS [None]
